FAERS Safety Report 5386486-7 (Version None)
Quarter: 2007Q3

REPORT INFORMATION
  Report Type: 
  Country: None (occurrence: None)
  Receive Date: 20070713
  Receipt Date: 20070705
  Transmission Date: 20080115
  Serious: Yes (Other)
  Sender: FDA-Public Use
  Company Number: FR-JNJFOC-20070604144

PATIENT
  Sex: Male
  Weight: 52 kg

DRUGS (6)
  1. RISPERDAL CONSTA [Suspect]
     Route: 030
  2. RISPERDAL CONSTA [Suspect]
     Route: 030
  3. RISPERDAL CONSTA [Suspect]
     Indication: SCHIZOPHRENIA
     Route: 030
  4. SEROPRAM [Concomitant]
     Indication: OBSESSIVE-COMPULSIVE DISORDER
  5. SEROPRAM [Concomitant]
     Indication: DEPRESSION
  6. LYSANXIA [Concomitant]
     Indication: ANXIETY

REACTIONS (5)
  - GYNAECOMASTIA [None]
  - HYPERPROLACTINAEMIA [None]
  - RESTLESS LEGS SYNDROME [None]
  - TREMOR [None]
  - WEIGHT DECREASED [None]
